FAERS Safety Report 4936331-6 (Version None)
Quarter: 2006Q1

REPORT INFORMATION
  Report Type: 
  Country: None (occurrence: None)
  Receive Date: 20060127
  Receipt Date: 20051201
  Transmission Date: 20060701
  Serious: Yes (Other)
  Sender: FDA-Public Use
  Company Number: 2005164918

PATIENT
  Age: 70 Year
  Sex: Male
  Weight: 73.4827 kg

DRUGS (13)
  1. LYRICA [Suspect]
     Indication: PAIN
     Dosage: 150 MG (50 MG, 3 IN 1 D), ORAL
     Route: 048
     Dates: start: 20051101
  2. LYRICA [Suspect]
     Indication: TREMOR
     Dosage: 150 MG (50 MG, 3 IN 1 D), ORAL
     Route: 048
     Dates: start: 20051101
  3. CYCLOSPORINE [Concomitant]
  4. TIAZAC [Concomitant]
  5. RHYTHMEX (AJMALINE) [Concomitant]
  6. GLIPIZIDE [Concomitant]
  7. LASIX [Concomitant]
  8. TOPROL-XL [Concomitant]
  9. ZESTRIL [Concomitant]
  10. PRILOSEC [Concomitant]
  11. KLOR-CON [Concomitant]
  12. MULTIPLE VITAMINS (ASCORBIC ACID, ERGOCALCIFEROL, FOLIC ACID, RETINOL, [Concomitant]
  13. FISH OIL (FISH OIL) [Concomitant]

REACTIONS (2)
  - DIZZINESS [None]
  - ENERGY INCREASED [None]
